FAERS Safety Report 24148246 (Version 1)
Quarter: 2024Q3

REPORT INFORMATION
  Report Type: Spontaneous
  Country: US (occurrence: None)
  Receive Date: 20240728
  Receipt Date: 20240728
  Transmission Date: 20241017
  Serious: Yes (Disabling)
  Sender: Public
  Company Number: None

PATIENT
  Age: 61 Year
  Sex: Female
  Weight: 69.3 kg

DRUGS (1)
  1. VABYSMO [Suspect]
     Active Substance: FARICIMAB\FARICIMAB-SVOA
     Indication: Retinal neovascularisation
     Dates: start: 20230519, end: 20230803

REACTIONS (8)
  - Vitreous floaters [None]
  - Vision blurred [None]
  - Endophthalmitis [None]
  - Alpha haemolytic streptococcal infection [None]
  - Intraocular pressure increased [None]
  - Cataract [None]
  - Penicillium infection [None]
  - Retinal detachment [None]

NARRATIVE: CASE EVENT DATE: 20230803
